FAERS Safety Report 9154032 (Version 2)
Quarter: 2013Q1

REPORT INFORMATION
  Report Type: Spontaneous
  Country: US (occurrence: None)
  Receive Date: 20130211
  Receipt Date: 20130221
  Transmission Date: 20140127
  Serious: Yes (Other)
  Sender: FDA-Public Use
  Company Number: 2013SUN00053

PATIENT
  Age: 60 Year
  Sex: Male
  Weight: 87 kg

DRUGS (7)
  1. METFORMIN [Suspect]
     Indication: TYPE 2 DIABETES MELLITUS
     Route: 048
     Dates: start: 20090625
  2. BLINDED ALOGLIPTIN BENZOATE (ALOGLIPTIN BENZOATE) [Suspect]
     Indication: TYPE 2 DIABETES MELLITUS
     Dosage: OD
     Route: 048
     Dates: start: 20090723, end: 20110801
  3. LISINOPRIL (LISINOPRIL) [Concomitant]
  4. DOXAZOCIN [Concomitant]
  5. LOVASTATIN [Concomitant]
  6. VIAGRA (SILDENAFIL CITRATE) [Concomitant]
  7. TRAMADOL (TRAMADOL) [Concomitant]

REACTIONS (2)
  - Congestive cardiomyopathy [None]
  - Cardiac failure [None]
